FAERS Safety Report 8804104 (Version 3)
Quarter: 2012Q4

REPORT INFORMATION
  Report Type: 
  Country: US (occurrence: US)
  Receive Date: 20120924
  Receipt Date: 20121205
  Transmission Date: 20130627
  Serious: Yes (Other)
  Sender: FDA-Public Use
  Company Number: US-JNJFOC-20120905496

PATIENT
  Sex: Female

DRUGS (13)
  1. SIMPONI [Suspect]
     Indication: RHEUMATOID ARTHRITIS
     Route: 058
     Dates: start: 201203
  2. SIMPONI [Suspect]
     Indication: RHEUMATOID ARTHRITIS
     Route: 058
     Dates: start: 20120417
  3. PREDNISONE [Suspect]
     Indication: RESPIRATORY DISORDER
     Route: 065
  4. PREDNISONE [Suspect]
     Indication: ARTHRITIS
     Route: 065
  5. ARAVA [Concomitant]
     Indication: RHEUMATOID ARTHRITIS
     Route: 048
     Dates: start: 2011
  6. METHOTREXATE [Concomitant]
     Indication: RHEUMATOID ARTHRITIS
     Route: 048
     Dates: start: 201203
  7. MIRAPEX [Concomitant]
     Indication: PARAESTHESIA
     Route: 048
     Dates: start: 2010
  8. MIRAPEX [Concomitant]
     Indication: HYPOAESTHESIA
     Route: 048
     Dates: start: 2010
  9. MIRAPEX [Concomitant]
     Indication: RESTLESS LEGS SYNDROME
     Route: 048
     Dates: start: 2010
  10. EXFORGE HCT [Concomitant]
     Indication: BLOOD PRESSURE
     Dosage: dose: 10/325 mg
     Route: 048
     Dates: start: 2010
  11. LABETALOL [Concomitant]
     Indication: BLOOD PRESSURE
     Route: 048
     Dates: start: 2010
  12. SINGULAIR [Concomitant]
     Indication: ASTHMA
     Route: 065
  13. ALL OTHER THERAPEUTICS [Concomitant]
     Indication: ASTHMA
     Route: 055

REACTIONS (8)
  - Inspiratory capacity decreased [Unknown]
  - Dyspnoea [Not Recovered/Not Resolved]
  - Weight increased [Not Recovered/Not Resolved]
  - Upper respiratory tract infection [Recovering/Resolving]
  - Hypersensitivity [Unknown]
  - Sinusitis [Not Recovered/Not Resolved]
  - Body height decreased [Not Recovered/Not Resolved]
  - Therapeutic response decreased [Not Recovered/Not Resolved]
